FAERS Safety Report 21512982 (Version 2)
Quarter: 2022Q4

REPORT INFORMATION
  Report Type: Spontaneous
  Country: US (occurrence: US)
  Receive Date: 20221027
  Receipt Date: 20221103
  Transmission Date: 20230112
  Serious: No
  Sender: FDA-Public Use
  Company Number: US-PFIZER INC-202201254108

PATIENT
  Age: 55 Year
  Sex: Male

DRUGS (4)
  1. ENBREL [Suspect]
     Active Substance: ETANERCEPT
     Indication: Pustular psoriasis
     Dosage: UNK
     Route: 065
  2. CYCLOSPORINE [Concomitant]
     Active Substance: CYCLOSPORINE
     Indication: Pustular psoriasis
     Dosage: UNK
  3. USTEKINUMAB [Concomitant]
     Active Substance: USTEKINUMAB
     Indication: Pustular psoriasis
     Dosage: UNK
  4. SECUKINUMAB [Concomitant]
     Active Substance: SECUKINUMAB
     Indication: Pustular psoriasis
     Dosage: UNK

REACTIONS (1)
  - Off label use [Unknown]
